FAERS Safety Report 8777623 (Version 3)
Quarter: 2012Q4

REPORT INFORMATION
  Report Type: Report from Study
  Country: None (occurrence: US)
  Receive Date: 20120911
  Receipt Date: 20121002
  Transmission Date: 20130627
  Serious: Yes (Other)
  Sender: FDA-Public Use
  Company Number: US-ABBOTT-12P-163-0976103-00

PATIENT
  Age: 69 Year
  Sex: Female

DRUGS (14)
  1. HUMIRA [Suspect]
     Indication: LICHEN PLANUS
     Dates: start: 2008, end: 201007
  2. HUMIRA [Suspect]
     Indication: MOUTH ULCERATION
     Route: 050
     Dates: start: 200910
  3. HUMIRA [Suspect]
     Indication: TONGUE ULCERATION
  4. PROTONIX [Concomitant]
     Indication: GASTROOESOPHAGEAL REFLUX DISEASE
     Dosage: 2 40 MG TAB DAILY
  5. NORVASC [Concomitant]
     Indication: HYPERTENSION
     Dosage: 2.5MG DAILY
     Route: 048
  6. PREMARIN [Concomitant]
     Indication: HORMONE REPLACEMENT THERAPY
     Dosage: 0.625
  7. FOLIC ACID [Concomitant]
     Indication: PRODUCT USED FOR UNKNOWN INDICATION
     Route: 048
  8. SYNTHROID [Concomitant]
     Indication: HYPOTHYROIDISM
     Dosage: 0.88 mg
     Route: 048
  9. FISH OIL [Concomitant]
     Indication: PRODUCT USED FOR UNKNOWN INDICATION
     Route: 048
  10. SINGULAIR [Concomitant]
     Indication: ASTHMA
  11. ADVAIR [Concomitant]
     Indication: ASTHMA
  12. AMBIEN [Concomitant]
     Indication: INSOMNIA
  13. NYSTATIN OIL SUSPENSION [Concomitant]
     Indication: LICHEN PLANUS
  14. GLIPIZIDE [Concomitant]
     Indication: TYPE 2 DIABETES MELLITUS
     Route: 048
     Dates: start: 2011

REACTIONS (8)
  - Rectocele [Not Recovered/Not Resolved]
  - Type 2 diabetes mellitus [Not Recovered/Not Resolved]
  - Pneumonia [Unknown]
  - Injection site pain [Unknown]
  - Injection site erythema [Unknown]
  - Incorrect dose administered [Unknown]
  - Injection site haemorrhage [Unknown]
  - Device malfunction [Unknown]
